FAERS Safety Report 19973752 (Version 3)
Quarter: 2022Q4

REPORT INFORMATION
  Report Type: Other
  Country: ES (occurrence: ES)
  Receive Date: 20211020
  Receipt Date: 20221013
  Transmission Date: 20230113
  Serious: Yes (Other)
  Sender: FDA-Public Use
  Company Number: ES-CELLTRION HEALTHCARE HUNGARY KFT-2021ES013472

PATIENT

DRUGS (11)
  1. RITUXIMAB [Suspect]
     Active Substance: RITUXIMAB
     Indication: Follicular lymphoma
     Route: 058
     Dates: start: 201403
  2. CYCLOPHOSPHAMIDE [Suspect]
     Active Substance: CYCLOPHOSPHAMIDE
     Indication: Follicular lymphoma
     Route: 058
  3. DOXORUBICIN HYDROCHLORIDE [Suspect]
     Active Substance: DOXORUBICIN HYDROCHLORIDE
     Indication: Follicular lymphoma
     Route: 058
  4. PREDNISONE [Suspect]
     Active Substance: PREDNISONE
     Indication: Follicular lymphoma
     Route: 058
  5. VINCRISTINE [Suspect]
     Active Substance: VINCRISTINE
     Indication: Follicular lymphoma
     Route: 058
  6. BENDAMUSTINE [Concomitant]
     Active Substance: BENDAMUSTINE
     Indication: Follicular lymphoma
     Route: 065
  7. IBRUTINIB [Concomitant]
     Active Substance: IBRUTINIB
     Indication: Follicular lymphoma
     Route: 048
  8. CISPLATIN [Concomitant]
     Active Substance: CISPLATIN
     Indication: Follicular lymphoma
     Dosage: 8 CYCLES
     Route: 058
     Dates: start: 201403
  9. CYTARABINE [Concomitant]
     Active Substance: CYTARABINE
     Indication: Follicular lymphoma
     Route: 058
     Dates: start: 201403
  10. ETOPOSIDE [Concomitant]
     Active Substance: ETOPOSIDE
     Indication: Follicular lymphoma
     Route: 058
     Dates: start: 201403
  11. METHYLPREDNISOLONE [Concomitant]
     Active Substance: METHYLPREDNISOLONE
     Indication: Follicular lymphoma
     Route: 058
     Dates: start: 201403

REACTIONS (2)
  - Thrombocytopenia [Unknown]
  - Incorrect route of product administration [Unknown]
